FAERS Safety Report 17246010 (Version 1)
Quarter: 2020Q1

REPORT INFORMATION
  Report Type: Report from Study
  Country: GB (occurrence: GB)
  Receive Date: 20200108
  Receipt Date: 20200108
  Transmission Date: 20200409
  Serious: Yes (Other)
  Sender: FDA-Public Use
  Company Number: GB-TEVA-2020-GB-1164227

PATIENT
  Age: 76 Year
  Sex: Female
  Weight: 66.3 kg

DRUGS (6)
  1. MORPHINE [Concomitant]
     Active Substance: MORPHINE
     Indication: PAIN
     Dosage: 2 OT, QD
     Route: 048
  2. CARBOPLATIN. [Suspect]
     Active Substance: CARBOPLATIN
     Indication: SMALL CELL LUNG CANCER
     Dosage: 450 MG, TIW , 450 MG 3 WEEKS
     Route: 042
     Dates: start: 20190808
  3. ETOPOSIDE. [Suspect]
     Active Substance: ETOPOSIDE
     Dosage: 120 MG, TIW
     Route: 042
     Dates: start: 20190808
  4. MORPHINE [Concomitant]
     Active Substance: MORPHINE
     Indication: PAIN
     Dosage: 10 MG/5ML , 5 MG
     Route: 048
     Dates: start: 20190719
  5. ATEZOLIZUMAB. [Suspect]
     Active Substance: ATEZOLIZUMAB
     Indication: SMALL CELL LUNG CANCER
     Dosage: 1200 MG, TIW , 1200 MG 3 WEEKS
     Route: 042
     Dates: start: 20190808
  6. ETOPOSIDE. [Suspect]
     Active Substance: ETOPOSIDE
     Indication: SMALL CELL LUNG CANCER
     Dosage: 250 MG, TIW (DAY 2 PLUS 3) , 250 MG 3 WEEKS
     Route: 048
     Dates: start: 20190809

REACTIONS (2)
  - Neck pain [Recovering/Resolving]
  - Pyrexia [Recovered/Resolved]

NARRATIVE: CASE EVENT DATE: 20190919
